FAERS Safety Report 7235576-2 (Version None)
Quarter: 2011Q1

REPORT INFORMATION
  Report Type: 
  Country: None (occurrence: None)
  Receive Date: 20110120
  Receipt Date: 20110117
  Transmission Date: 20110831
  Serious: Yes (Death)
  Sender: FDA-Public Use
  Company Number: PHHY2011US03332

PATIENT
  Sex: Female
  Weight: 64 kg

DRUGS (10)
  1. INTRON A [Concomitant]
     Dosage: 3MU/0.5
  2. FAMOTIDINE [Concomitant]
  3. POTASSIUM [Concomitant]
  4. EXJADE [Suspect]
     Dosage: 1000 MG DAILY
     Route: 048
  5. EXJADE [Suspect]
     Dosage: 500 MG, QD
     Route: 048
  6. CENTRUM SILVER [Concomitant]
  7. STOOL SOFTENER [Concomitant]
  8. MULTIVITAMIN [Concomitant]
  9. FUROSEMIDE [Concomitant]
  10. CALCIUM D [Concomitant]

REACTIONS (2)
  - DEATH [None]
  - MALAISE [None]
